FAERS Safety Report 14351416 (Version 2)
Quarter: 2018Q1

REPORT INFORMATION
  Report Type: Spontaneous
  Country: CA (occurrence: CA)
  Receive Date: 20180104
  Receipt Date: 20180221
  Transmission Date: 20180509
  Serious: Yes (Hospitalization)
  Sender: FDA-Public Use
  Company Number: CA-SA-2017SA265473

PATIENT
  Age: 50 Year
  Sex: Female
  Weight: 62.7 kg

DRUGS (3)
  1. OXALIPLATIN. [Suspect]
     Active Substance: OXALIPLATIN
     Indication: RECTAL ADENOCARCINOMA
     Dosage: IV IN 500ML OF D5% IN 120 MIN
     Route: 042
     Dates: start: 20160711, end: 20160711
  2. OXALIPLATIN. [Suspect]
     Active Substance: OXALIPLATIN
     Indication: RECTAL ADENOCARCINOMA
     Dosage: IV DANS 500ML DE 05% EN 120 MIN
     Route: 042
     Dates: start: 20170220, end: 20170220
  3. OXALIPLATIN. [Suspect]
     Active Substance: OXALIPLATIN
     Indication: RECTAL ADENOCARCINOMA
     Dosage: IV DANS 500ML DE 05% EN 120 MIN
     Route: 042
     Dates: start: 20170306, end: 20170306

REACTIONS (3)
  - Platelet count decreased [Recovered/Resolved]
  - Platelet transfusion [Unknown]
  - Petechiae [Recovered/Resolved]

NARRATIVE: CASE EVENT DATE: 20170223
